FAERS Safety Report 8311559 (Version 4)
Quarter: 2013Q1

REPORT INFORMATION
  Report Type: Spontaneous
  Country: US (occurrence: US)
  Receive Date: 20111227
  Receipt Date: 20130311
  Transmission Date: 20140127
  Serious: Yes (Hospitalization)
  Sender: FDA-Public Use
  Company Number: US-BAYER-2011-122133

PATIENT
  Age: 33 Year
  Sex: Female
  Weight: 113 kg

DRUGS (4)
  1. YASMIN [Suspect]
     Dosage: UNK
     Dates: start: 2001, end: 2003
  2. Z-PAK [Concomitant]
  3. ECHINACEA [Concomitant]
     Route: 048
  4. HYDROCORTISON [HYDROCORTISONE] [Concomitant]
     Route: 061

REACTIONS (4)
  - Pulmonary embolism [Recovered/Resolved]
  - Deep vein thrombosis [Recovered/Resolved]
  - Injury [Recovered/Resolved]
  - Pain [Recovered/Resolved]
